FAERS Safety Report 17209337 (Version 1)
Quarter: 2019Q4

REPORT INFORMATION
  Report Type: Report from Study
  Country: JP (occurrence: JP)
  Receive Date: 20191227
  Receipt Date: 20191227
  Transmission Date: 20200122
  Serious: Yes (Other)
  Sender: FDA-Public Use
  Company Number: JP-ACTELION-A-CH2018-176431

PATIENT
  Age: 32 Year
  Sex: Male

DRUGS (23)
  1. FEBURIC [Concomitant]
     Active Substance: FEBUXOSTAT
     Route: 065
  2. UPTRAVI [Suspect]
     Active Substance: SELEXIPAG
     Indication: PULMONARY ARTERIAL HYPERTENSION
     Dosage: 0.2 MG, QD
     Route: 048
     Dates: start: 20171017, end: 2017
  3. FLOLAN [Suspect]
     Active Substance: EPOPROSTENOL SODIUM
     Dosage: 39.9 NG/KG, PER MIN
     Route: 042
     Dates: start: 20171117
  4. LAC-B [Concomitant]
     Active Substance: BIFIDOBACTERIUM SPP.
     Route: 065
  5. FLOLAN [Suspect]
     Active Substance: EPOPROSTENOL SODIUM
     Dosage: 38 NG/KG, PER MIN
     Route: 042
     Dates: start: 20160530, end: 20160530
  6. FLOLAN [Suspect]
     Active Substance: EPOPROSTENOL SODIUM
     Dosage: 40 NG/KG, PER MIN
     Route: 042
     Dates: start: 20160531, end: 20160707
  7. OPSUMIT [Suspect]
     Active Substance: MACITENTAN
     Indication: PULMONARY ARTERIAL HYPERTENSION
     Dosage: 10 MG, QD
     Route: 048
     Dates: start: 20160530
  8. FLOLAN [Suspect]
     Active Substance: EPOPROSTENOL SODIUM
     Dosage: 43 NG/KG, PER MIN
     Route: 042
     Dates: start: 20161108, end: 20161227
  9. LOPEMIN [Concomitant]
     Route: 065
  10. ADCIRCA [Concomitant]
     Active Substance: TADALAFIL
     Route: 065
  11. UPTRAVI [Suspect]
     Active Substance: SELEXIPAG
     Dosage: 1 MG, BID
     Route: 048
     Dates: start: 20171117
  12. FLOLAN [Suspect]
     Active Substance: EPOPROSTENOL SODIUM
     Indication: PULMONARY ARTERIAL HYPERTENSION
     Dosage: 42 NG/KG, PER MIN
     Route: 042
     Dates: start: 20161228, end: 20171116
  13. FUROSEMIDE. [Concomitant]
     Active Substance: FUROSEMIDE
     Route: 065
  14. SELARA [Concomitant]
     Active Substance: EPLERENONE
     Route: 065
  15. FLOLAN [Suspect]
     Active Substance: EPOPROSTENOL SODIUM
     Dosage: 42 NG/KG, PER MIN
     Route: 042
     Dates: start: 20160809, end: 20161106
  16. FLOLAN [Suspect]
     Active Substance: EPOPROSTENOL SODIUM
     Dosage: 44 NG/KG, PER MIN
     Route: 042
     Dates: start: 20161108, end: 20161227
  17. NAUZELIN [Concomitant]
     Active Substance: DOMPERIDONE
     Route: 065
  18. CRAVIT [Concomitant]
     Active Substance: LEVOFLOXACIN
     Route: 065
  19. DEPAKENE-R [Concomitant]
     Active Substance: VALPROATE SODIUM
     Route: 065
  20. E KEPPRA [Concomitant]
     Active Substance: LEVETIRACETAM
     Route: 065
  21. FLOLAN [Suspect]
     Active Substance: EPOPROSTENOL SODIUM
     Dosage: 41 NG/KG, PER MIN
     Route: 042
     Dates: start: 20160708, end: 20160808
  22. UPTRAVI [Suspect]
     Active Substance: SELEXIPAG
     Dosage: 0.8 MG, BID
     Route: 048
     Dates: start: 2017, end: 2017
  23. FLOLAN [Suspect]
     Active Substance: EPOPROSTENOL SODIUM
     Dosage: 39 NG/KG, PER MIN
     Route: 042
     Dates: start: 20160531, end: 20160707

REACTIONS (8)
  - Pneumonia bacterial [Recovered/Resolved]
  - Thyroiditis [Recovering/Resolving]
  - Deafness [Recovered/Resolved]
  - Headache [Recovering/Resolving]
  - Hyperthyroidism [Recovering/Resolving]
  - Pain in extremity [Recovered/Resolved]
  - Concomitant disease aggravated [Recovered/Resolved]
  - Tinnitus [Recovered/Resolved]

NARRATIVE: CASE EVENT DATE: 20170512
